FAERS Safety Report 9807508 (Version 1)
Quarter: 2014Q1

REPORT INFORMATION
  Report Type: Spontaneous
  Country: US (occurrence: US)
  Receive Date: 20140110
  Receipt Date: 20140110
  Transmission Date: 20141002
  Serious: No
  Sender: FDA-Public Use
  Company Number: US-SA-2013SA106502

PATIENT
  Age: 76 Year
  Sex: Female
  Weight: 54 kg

DRUGS (1)
  1. PLAVIX [Suspect]
     Indication: TRANSIENT ISCHAEMIC ATTACK
     Dosage: TAKEN FROM: ABOUT TWO WEEKS AGO
     Route: 048
     Dates: start: 20131002

REACTIONS (4)
  - Neuropathy peripheral [Unknown]
  - Haematuria [Recovered/Resolved]
  - Epistaxis [Recovered/Resolved]
  - Wrong technique in drug usage process [Unknown]
